FAERS Safety Report 19580709 (Version 1)
Quarter: 2021Q3

REPORT INFORMATION
  Report Type: Spontaneous
  Country: US (occurrence: US)
  Receive Date: 20210720
  Receipt Date: 20210720
  Transmission Date: 20211014
  Serious: Yes (Hospitalization)
  Sender: FDA-Public Use
  Company Number: US-ROCHE-2873710

PATIENT
  Sex: Female

DRUGS (16)
  1. XOLAIR [Suspect]
     Active Substance: OMALIZUMAB
     Indication: ASTHMA
     Dosage: 150 MG/ML
     Route: 058
  2. FUROSEMIDE. [Concomitant]
     Active Substance: FUROSEMIDE
  3. LEVOTHYROXINE SODIUM. [Concomitant]
     Active Substance: LEVOTHYROXINE SODIUM
  4. LOSARTAN POTASSIUM. [Concomitant]
     Active Substance: LOSARTAN POTASSIUM
  5. OMEPRAZOLE. [Concomitant]
     Active Substance: OMEPRAZOLE
  6. XOLAIR [Suspect]
     Active Substance: OMALIZUMAB
  7. DILTIAZEM HCL EXTE?REL [Concomitant]
     Active Substance: DILTIAZEM HYDROCHLORIDE
  8. HYDROCODONE/ACETAMINOPHEN [Concomitant]
     Active Substance: ACETAMINOPHEN\HYDROCODONE
  9. XOLAIR [Suspect]
     Active Substance: OMALIZUMAB
  10. AMOXICILLIN. [Concomitant]
     Active Substance: AMOXICILLIN
  11. DEXILANT [Concomitant]
     Active Substance: DEXLANSOPRAZOLE
  12. FLUCONAZOLE. [Concomitant]
     Active Substance: FLUCONAZOLE
  13. KLOR?CON M20 [Concomitant]
     Active Substance: POTASSIUM CHLORIDE
  14. TAMIFLU [Concomitant]
     Active Substance: OSELTAMIVIR PHOSPHATE
  15. PREDNISONE. [Concomitant]
     Active Substance: PREDNISONE
  16. ZYFLO CR [Concomitant]
     Active Substance: ZILEUTON

REACTIONS (2)
  - Asthma [Unknown]
  - Product dose omission issue [Unknown]
